FAERS Safety Report 19507746 (Version 1)
Quarter: 2021Q3

REPORT INFORMATION
  Report Type: Other
  Country: ZA (occurrence: ZA)
  Receive Date: 20210708
  Receipt Date: 20210708
  Transmission Date: 20211014
  Serious: Yes (Death, Life-Threatening, Hospitalization, Other)
  Sender: FDA-Public Use
  Company Number: ZA-APPCO PHARMA LLC-2113602

PATIENT
  Age: 26 Year
  Sex: Female

DRUGS (11)
  1. POLYGAM [Suspect]
     Active Substance: HUMAN IMMUNOGLOBULIN G
     Route: 042
  2. AMLODIPINE [Concomitant]
     Active Substance: AMLODIPINE BESYLATE
     Route: 065
  3. PIPERACILLIN AND TAZOBACTAM [Suspect]
     Active Substance: PIPERACILLIN SODIUM\TAZOBACTAM SODIUM
     Route: 042
  4. ALDACTONE [Suspect]
     Active Substance: SPIRONOLACTONE
     Route: 048
  5. PYRIDOXINE HCI [Suspect]
     Active Substance: PYRIDOXINE HYDROCHLORIDE
     Route: 048
  6. HYDROCHLOROTHIAZIDE. [Concomitant]
     Active Substance: HYDROCHLOROTHIAZIDE
     Route: 065
  7. LAMIVUDINE. [Suspect]
     Active Substance: LAMIVUDINE
     Indication: HIV INFECTION
     Route: 048
  8. THIAMINE. [Suspect]
     Active Substance: THIAMINE
     Route: 048
  9. ABACAVIR. [Suspect]
     Active Substance: ABACAVIR
     Route: 048
  10. EFAVIRENZ. [Suspect]
     Active Substance: EFAVIRENZ
     Route: 048
  11. K2 COLD THERAPY [Suspect]
     Active Substance: MENTHOL
     Route: 048

REACTIONS (2)
  - Respiratory failure [Fatal]
  - Drug ineffective [Fatal]
